FAERS Safety Report 23162515 (Version 1)
Quarter: 2023Q4

REPORT INFORMATION
  Report Type: Spontaneous
  Country: FR (occurrence: FR)
  Receive Date: 20231109
  Receipt Date: 20231109
  Transmission Date: 20240110
  Serious: Yes (Hospitalization)
  Sender: FDA-Public Use
  Company Number: FR-SAMSUNG BIOEPIS-SB-2023-28118

PATIENT
  Sex: Female

DRUGS (1)
  1. ETANERCEPT [Suspect]
     Active Substance: ETANERCEPT
     Indication: Product used for unknown indication
     Dosage: UNKNOWN
     Route: 058

REACTIONS (6)
  - Accidental exposure to product [Unknown]
  - Illness [Unknown]
  - Device difficult to use [Unknown]
  - Exposure via skin contact [Unknown]
  - Product leakage [Unknown]
  - Incorrect dose administered by device [Unknown]
